FAERS Safety Report 7568063-2 (Version None)
Quarter: 2011Q2

REPORT INFORMATION
  Report Type: 
  Country: None (occurrence: None)
  Receive Date: 20110623
  Receipt Date: 20110613
  Transmission Date: 20111010
  Serious: Yes (Hospitalization)
  Sender: FDA-Public Use
  Company Number: GB-SANOFI-AVENTIS-2011SA037082

PATIENT
  Age: 56 Year
  Sex: Female

DRUGS (15)
  1. ALL OTHER THERAPEUTIC PRODUCTS [Suspect]
     Indication: TYPE 2 DIABETES MELLITUS
     Route: 058
     Dates: start: 20100604
  2. CARVEDILOL [Concomitant]
  3. ASPIRIN [Concomitant]
     Dates: start: 20100729
  4. CYANOCOBALAMIN [Concomitant]
     Dates: start: 19840101
  5. HYDROCHLOROTHIAZIDE [Concomitant]
  6. INSULIN GLARGINE [Suspect]
     Indication: TYPE 2 DIABETES MELLITUS
     Route: 058
     Dates: start: 20100408
  7. ASCORBIC ACID [Concomitant]
  8. VITAMIN D [Concomitant]
     Dates: start: 20100201
  9. POTASSIUM CHLORIDE [Concomitant]
  10. PAROXETINE HCL [Concomitant]
  11. HYDROCORTISONE [Concomitant]
     Dates: start: 20100326
  12. METFFORMIN HYDROCHLORIDE [Concomitant]
     Dates: start: 20090501
  13. FISH OIL [Concomitant]
  14. INSULIN GLARGINE [Suspect]
     Route: 058
     Dates: start: 20101201
  15. LISINOPRIL [Concomitant]

REACTIONS (2)
  - DIARRHOEA [None]
  - VOMITING [None]
